FAERS Safety Report 18096781 (Version 1)
Quarter: 2020Q3

REPORT INFORMATION
  Report Type: Spontaneous
  Country: US (occurrence: US)
  Receive Date: 20200731
  Receipt Date: 20200731
  Transmission Date: 20201103
  Serious: Yes (Other)
  Sender: FDA-Public Use
  Company Number: US-BIOVITRUM-2020US3977

PATIENT
  Age: 16 Month
  Sex: Male

DRUGS (1)
  1. KINERET [Suspect]
     Active Substance: ANAKINRA
     Indication: FAILURE TO THRIVE

REACTIONS (2)
  - Off label use [Recovered/Resolved]
  - Pneumonia [Unknown]
